FAERS Safety Report 25617315 (Version 1)
Quarter: 2025Q3

REPORT INFORMATION
  Report Type: Spontaneous
  Country: US (occurrence: None)
  Receive Date: 20250728
  Receipt Date: 20250728
  Transmission Date: 20251021
  Serious: Yes (Hospitalization)
  Sender: FDA-CTU
  Company Number: None

PATIENT
  Sex: Female

DRUGS (3)
  1. TEZSPIRE [Suspect]
     Active Substance: TEZEPELUMAB-EKKO
     Indication: Asthma
     Route: 058
     Dates: start: 20240730
  2. MOVE FREE TAB JOINT [Concomitant]
  3. VIT D HP CAP 2000UNIT [Concomitant]

REACTIONS (3)
  - Asthma [None]
  - Impaired quality of life [None]
  - Infection [None]
